FAERS Safety Report 4736696-4 (Version None)
Quarter: 2005Q3

REPORT INFORMATION
  Report Type: 
  Country: None (occurrence: None)
  Receive Date: 20050808
  Receipt Date: 20050808
  Transmission Date: 20060218
  Serious: No
  Sender: FDA-Public Use
  Company Number: None

PATIENT
  Age: 51 Year
  Sex: Male
  Weight: 63.9572 kg

DRUGS (4)
  1. METOPROLOL 50 MG, TEVA PHARMACEUTICALS [Suspect]
     Indication: ANXIETY
     Dosage: ONE PO BID
     Route: 048
  2. METOPROLOL 50 MG, TEVA PHARMACEUTICALS [Suspect]
     Indication: HYPERTENSION
     Dosage: ONE PO BID
     Route: 048
  3. ENALAPRIL [Concomitant]
  4. ASPIRIN [Concomitant]

REACTIONS (5)
  - ANXIETY [None]
  - BLOOD PRESSURE INCREASED [None]
  - PALPITATIONS [None]
  - PARAESTHESIA [None]
  - PHARMACEUTICAL PRODUCT COMPLAINT [None]
